FAERS Safety Report 15347136 (Version 1)
Quarter: 2018Q3

REPORT INFORMATION
  Report Type: Spontaneous
  Country: PL (occurrence: PL)
  Receive Date: 20180904
  Receipt Date: 20180904
  Transmission Date: 20181010
  Serious: Yes (Hospitalization, Other)
  Sender: FDA-Public Use
  Company Number: PL-BAYER-2018-160732

PATIENT
  Age: 70 Year
  Sex: Male

DRUGS (11)
  1. CIPROFLOXACIN. [Interacting]
     Active Substance: CIPROFLOXACIN
     Indication: PROSTATITIS
     Dosage: 500 MG, BID
  2. SEROQUEL [Concomitant]
     Active Substance: QUETIAPINE FUMARATE
     Dosage: 50 MG, UNK
  3. DULOXETINE. [Interacting]
     Active Substance: DULOXETINE
     Dosage: DAILY DOSE 60 MG
  4. METOPROLOL. [Concomitant]
     Active Substance: METOPROLOL
     Dosage: 50 MG, BID
  5. DABIGATRAN [Concomitant]
     Active Substance: DABIGATRAN
     Dosage: 150 MG, BID
  6. DULOXETINE. [Interacting]
     Active Substance: DULOXETINE
     Dosage: 90 MG, UNK
  7. ALPHA LIPOIC ACID [Concomitant]
     Active Substance: .ALPHA.-LIPOIC ACID
  8. DIGOSIN [Concomitant]
     Active Substance: DIGOXIN
     Dosage: 0.1 MG, QD
  9. CIPROFLOXACIN. [Suspect]
     Active Substance: CIPROFLOXACIN
     Indication: PROSTATITIS
     Dosage: 500 MG, UNK
  10. METFORMIN [Concomitant]
     Active Substance: METFORMIN HYDROCHLORIDE
     Dosage: 1000 MG, BID
  11. TAMSULOSIN [Concomitant]
     Active Substance: TAMSULOSIN
     Dosage: 0.4 MG, QD

REACTIONS (8)
  - Headache [Recovered/Resolved]
  - Anxiety [Recovered/Resolved]
  - Nausea [Recovered/Resolved]
  - Diplopia [Recovered/Resolved]
  - Drug interaction [None]
  - Yawning [Recovered/Resolved]
  - Dizziness [Recovered/Resolved]
  - Product use issue [None]
